FAERS Safety Report 15365740 (Version 1)
Quarter: 2018Q3

REPORT INFORMATION
  Report Type: Spontaneous
  Country: US (occurrence: US)
  Receive Date: 20180831
  Receipt Date: 20180831
  Transmission Date: 20181010
  Serious: Yes (Hospitalization)
  Sender: FDA-Public Use
  Company Number: None

PATIENT
  Age: 66 Year
  Sex: Male
  Weight: 97 kg

DRUGS (11)
  1. POTASSIUM 20 MEQ [Concomitant]
  2. ASPIRIN 81 MG [Concomitant]
     Active Substance: ASPIRIN
  3. FUROSEMIDE 40 MG [Concomitant]
     Active Substance: FUROSEMIDE
  4. APIXABAN 5 MG [Concomitant]
     Active Substance: APIXABAN
  5. METFORMIN XR 500 MG [Concomitant]
  6. METOPROLOL 25 MG [Concomitant]
     Active Substance: METOPROLOL
  7. SPIRONOLACTONE. [Suspect]
     Active Substance: SPIRONOLACTONE
     Indication: CARDIAC FAILURE
     Route: 048
  8. ATORVASTATIN 10 MG [Concomitant]
     Active Substance: ATORVASTATIN
  9. CHOLECALCIFEROL 1000 UNITS [Concomitant]
  10. OMEGA 3 [Concomitant]
     Active Substance: OMEGA-3 FATTY ACIDS
  11. METOLAZONE 2.5 MG [Concomitant]

REACTIONS (5)
  - Pulmonary hypertension [None]
  - Acute kidney injury [None]
  - Bradycardia [None]
  - Asthenia [None]
  - Unresponsive to stimuli [None]

NARRATIVE: CASE EVENT DATE: 20180503
